FAERS Safety Report 7419549-2 (Version None)
Quarter: 2011Q2

REPORT INFORMATION
  Report Type: 
  Country: None (occurrence: None)
  Receive Date: 20110412
  Receipt Date: 20110412
  Transmission Date: 20111010
  Serious: Yes (Hospitalization)
  Sender: FDA-Public Use
  Company Number: None

PATIENT
  Age: 64 Year
  Sex: Male
  Weight: 67 kg

DRUGS (2)
  1. SULFAMETHOXAZOLE TRIMETHOPRIM [Suspect]
     Indication: INFECTION
     Dosage: 160 MG BID PO
     Route: 048
     Dates: start: 20101013, end: 20101019
  2. SULFAMETHOXAZOLE TRIMETHOPRIM [Suspect]
     Indication: SURGERY
     Dosage: 160 MG BID PO
     Route: 048
     Dates: start: 20101013, end: 20101019

REACTIONS (1)
  - RENAL IMPAIRMENT [None]
